FAERS Safety Report 9806193 (Version 1)
Quarter: 2014Q1

REPORT INFORMATION
  Report Type: Spontaneous
  Country: US (occurrence: US)
  Receive Date: 20140109
  Receipt Date: 20140109
  Transmission Date: 20141002
  Serious: No
  Sender: FDA-Public Use
  Company Number: US-009507513-1401USA002425

PATIENT
  Sex: Female

DRUGS (1)
  1. DULERA [Suspect]
     Indication: ASTHMA
     Dosage: 200/5MCG 2 DF, BID
     Route: 055
     Dates: start: 2013

REACTIONS (3)
  - Feeling abnormal [Unknown]
  - Feeling jittery [Unknown]
  - Palpitations [Unknown]
